FAERS Safety Report 17241445 (Version 1)
Quarter: 2020Q1

REPORT INFORMATION
  Report Type: Spontaneous
  Country: BR (occurrence: BR)
  Receive Date: 20200107
  Receipt Date: 20200107
  Transmission Date: 20200409
  Serious: Yes (Hospitalization)
  Sender: FDA-Public Use
  Company Number: BR-TAKEDA-2020TUS000380

PATIENT
  Age: 37 Year
  Sex: Female
  Weight: 74 kg

DRUGS (2)
  1. DEXILANT [Suspect]
     Active Substance: DEXLANSOPRAZOLE
     Indication: EROSIVE OESOPHAGITIS
     Dosage: 60 MILLIGRAM, QD
     Route: 048
     Dates: start: 20191213, end: 20191230
  2. OMEPRAMIX [Concomitant]
     Active Substance: AMOXICILLIN\CLARITHROMYCIN\OMEPRAZOLE
     Indication: GASTRIC ULCER
     Dosage: UNK
     Route: 048
     Dates: start: 20191213, end: 20191226

REACTIONS (16)
  - Asthenia [Not Recovered/Not Resolved]
  - Dysgeusia [Not Recovered/Not Resolved]
  - Dehydration [Not Recovered/Not Resolved]
  - Bone pain [Not Recovered/Not Resolved]
  - Abdominal pain [Not Recovered/Not Resolved]
  - Dry mouth [Not Recovered/Not Resolved]
  - Migraine [Not Recovered/Not Resolved]
  - Weight decreased [Not Recovered/Not Resolved]
  - Crying [Unknown]
  - Anaemia [Not Recovered/Not Resolved]
  - Dizziness [Not Recovered/Not Resolved]
  - Decreased appetite [Not Recovered/Not Resolved]
  - Depression [Not Recovered/Not Resolved]
  - Insomnia [Not Recovered/Not Resolved]
  - Constipation [Not Recovered/Not Resolved]
  - Feeling of despair [Unknown]

NARRATIVE: CASE EVENT DATE: 20191213
